FAERS Safety Report 25202859 (Version 1)
Quarter: 2025Q2

REPORT INFORMATION
  Report Type: Spontaneous
  Country: ZA (occurrence: ZA)
  Receive Date: 20250416
  Receipt Date: 20250416
  Transmission Date: 20250717
  Serious: Yes (Other)
  Sender: BAYER
  Company Number: ZA-BAYER-2025A049658

PATIENT
  Age: 54 Year
  Sex: Female

DRUGS (7)
  1. ANGELIQ [Suspect]
     Active Substance: DROSPIRENONE\ESTRADIOL
     Dosage: UNK UNK, QD
     Route: 048
  2. Synaleve [Concomitant]
     Dosage: TAKE TWO CAPSULES QID, WHEN NEEDED
     Route: 048
  3. ESOMEPRAZOLE [Concomitant]
     Active Substance: ESOMEPRAZOLE
     Dosage: 40 MG, QD
     Route: 048
  4. CELECOXIB [Concomitant]
     Active Substance: CELECOXIB
     Dosage: 200 MG, BID
     Route: 048
  5. Corenza c [Concomitant]
     Route: 048
  6. PICOPREP [Concomitant]
     Active Substance: ANHYDROUS CITRIC ACID\MAGNESIUM OXIDE\SODIUM PICOSULFATE
     Route: 048
  7. Microlax [Concomitant]
     Route: 054

REACTIONS (1)
  - Ankle fracture [None]

NARRATIVE: CASE EVENT DATE: 20250403
